FAERS Safety Report 4860832-2 (Version None)
Quarter: 2005Q4

REPORT INFORMATION
  Report Type: 
  Country: None (occurrence: None)
  Receive Date: 20051220
  Receipt Date: 20051027
  Transmission Date: 20060501
  Serious: Yes (Hospitalization)
  Sender: FDA-Public Use
  Company Number: 2005UW16232

PATIENT
  Age: 21188 Day
  Sex: Male
  Weight: 80.5 kg

DRUGS (12)
  1. IRESSA [Suspect]
     Indication: SQUAMOUS CELL CARCINOMA
     Route: 048
     Dates: start: 20050926, end: 20051021
  2. TAXOTERE [Suspect]
     Indication: SQUAMOUS CELL CARCINOMA
     Dosage: 115 MG GIVEN
     Route: 042
     Dates: start: 20050926, end: 20051017
  3. CARBOPLATIN [Suspect]
     Indication: SQUAMOUS CELL CARCINOMA
     Dosage: 589 MG GIVEN
     Route: 042
     Dates: start: 20050926, end: 20051017
  4. FLUOROURACIL [Suspect]
     Indication: SQUAMOUS CELL CARCINOMA
     Route: 042
     Dates: start: 20050926, end: 20051021
  5. HYDROCHLOROTHIAZIDE [Concomitant]
     Indication: HYPERTENSION
     Dates: start: 20050301, end: 20051027
  6. LIPITOR [Concomitant]
     Indication: HYPERCHOLESTEROLAEMIA
     Dates: start: 20030201, end: 20051021
  7. LISINOPRIL [Concomitant]
     Indication: HYPERTENSION
     Dates: start: 20030201, end: 20051021
  8. ATENOLOL [Concomitant]
     Indication: HYPERTENSION
     Dates: start: 20030201
  9. ASPIRIN [Concomitant]
     Indication: CORONARY ARTERY DISEASE
     Dates: start: 20050201, end: 20051021
  10. PERCOCET [Concomitant]
     Indication: PAIN
     Dates: start: 20050901, end: 20051021
  11. WELLBUTRIN [Concomitant]
     Indication: SMOKING CESSATION THERAPY
     Dates: start: 20050901, end: 20051021
  12. LOPERAMIDE [Concomitant]
     Indication: DIARRHOEA
     Dosage: AFTER LOOSE STOOL
     Dates: start: 20051001

REACTIONS (8)
  - CHEST PAIN [None]
  - DEHYDRATION [None]
  - DIARRHOEA [None]
  - DYSPHAGIA [None]
  - HYPOTENSION [None]
  - MUCOSAL INFLAMMATION [None]
  - ORAL PAIN [None]
  - PHARYNGOLARYNGEAL PAIN [None]
